FAERS Safety Report 5318920-2 (Version None)
Quarter: 2007Q2

REPORT INFORMATION
  Report Type: 
  Country: None (occurrence: None)
  Receive Date: 20070504
  Receipt Date: 20070504
  Transmission Date: 20071010
  Serious: Yes (Hospitalization)
  Sender: FDA-Public Use
  Company Number: None

PATIENT
  Sex: Female
  Weight: 100 kg

DRUGS (9)
  1. CARBOPLATIN [Suspect]
     Dosage: 648 MG
  2. TAXOL [Suspect]
     Dosage: 350 MG
  3. ALPROAZOLAM [Concomitant]
  4. WELLBUTRIN [Concomitant]
  5. ZOFRAN [Concomitant]
  6. ZOLOFT [Concomitant]
  7. CELEBREX [Concomitant]
  8. DETROL [Concomitant]
  9. LISINOPRIL AND HYDROCHLOROTHIAZIDE [Concomitant]

REACTIONS (3)
  - CHEST PAIN [None]
  - DIZZINESS [None]
  - DYSPNOEA [None]
